FAERS Safety Report 8215722-4 (Version None)
Quarter: 2012Q1

REPORT INFORMATION
  Report Type: 
  Country: None (occurrence: None)
  Receive Date: 20120316
  Receipt Date: 20120302
  Transmission Date: 20120608
  Serious: Yes (Other)
  Sender: FDA-Public Use
  Company Number: CHPA2012US004673

PATIENT
  Sex: Female

DRUGS (2)
  1. NICOTINE [Suspect]
     Dosage: UNK, UNK
     Route: 062
  2. INSULIN [Concomitant]
     Indication: DIABETES MELLITUS
     Dosage: UNK, UNK

REACTIONS (7)
  - BLISTER [None]
  - THERMAL BURN [None]
  - BLOOD GLUCOSE INCREASED [None]
  - RASH PUSTULAR [None]
  - PAIN [None]
  - CONCOMITANT DISEASE AGGRAVATED [None]
  - INFECTION [None]
